FAERS Safety Report 7742998-X (Version None)
Quarter: 2011Q3

REPORT INFORMATION
  Report Type: 
  Country: None (occurrence: None)
  Receive Date: 20110912
  Receipt Date: 20110906
  Transmission Date: 20111222
  Serious: Yes (Other)
  Sender: FDA-Public Use
  Company Number: US-BAXTER-2011BH028656

PATIENT
  Age: 11 Year
  Sex: Male

DRUGS (7)
  1. MESNA [Suspect]
     Indication: DRUG TOXICITY PROPHYLAXIS
     Route: 042
  2. VINCRISTINE [Suspect]
     Indication: PRIMITIVE NEUROECTODERMAL TUMOUR
     Route: 065
  3. MESNA [Suspect]
     Route: 041
  4. AMIFOSTINE [Suspect]
     Indication: DRUG TOXICITY PROPHYLAXIS
     Route: 065
  5. AMIFOSTINE [Suspect]
     Route: 065
  6. CYCLOPHOSPHAMIDE [Suspect]
     Indication: PRIMITIVE NEUROECTODERMAL TUMOUR
     Route: 065
  7. CISPLATIN [Suspect]
     Indication: PRIMITIVE NEUROECTODERMAL TUMOUR
     Route: 065

REACTIONS (2)
  - DRUG RASH WITH EOSINOPHILIA AND SYSTEMIC SYMPTOMS [None]
  - LEUKOPENIA [None]
